FAERS Safety Report 10019672 (Version 2)
Quarter: 2014Q2

REPORT INFORMATION
  Report Type: Spontaneous
  Country: DK (occurrence: DK)
  Receive Date: 20140318
  Receipt Date: 20140506
  Transmission Date: 20141212
  Serious: Yes (Hospitalization)
  Sender: FDA-Public Use
  Company Number: PHHY2014DK029472

PATIENT
  Age: 42 Year
  Sex: Female

DRUGS (2)
  1. LEVETIRACETAM [Suspect]
     Indication: EPILEPSY
     Dosage: 3250 MG, QD
     Route: 048
     Dates: start: 20090101
  2. ZEBINIX [Interacting]
     Indication: EPILEPSY
     Dosage: 1200 MG, QD
     Route: 048
     Dates: start: 20120101, end: 20140228

REACTIONS (2)
  - Hyponatraemia [Recovered/Resolved]
  - Convulsion [Recovered/Resolved]
